FAERS Safety Report 7530283-0 (Version None)
Quarter: 2011Q2

REPORT INFORMATION
  Report Type: 
  Country: None (occurrence: None)
  Receive Date: 20110531
  Receipt Date: 20110517
  Transmission Date: 20111010
  Serious: Yes (Death, Life-Threatening, Hospitalization, Other)
  Sender: FDA-Public Use
  Company Number: 2011MA006015

PATIENT
  Age: 55 Year
  Sex: Male

DRUGS (3)
  1. METFORMIN HYDROCHLORIDE [Suspect]
     Indication: COMPLETED SUICIDE
     Dosage: 51000 MG, 1X
  2. ROSIGLITAZONE [Concomitant]
  3. GLIPIZIDE [Concomitant]

REACTIONS (15)
  - SUICIDE ATTEMPT [None]
  - ABDOMINAL PAIN [None]
  - OXYGEN SATURATION DECREASED [None]
  - BLOOD LACTATE DEHYDROGENASE INCREASED [None]
  - NAUSEA [None]
  - LETHARGY [None]
  - HAEMODIALYSIS [None]
  - BLOOD GLUCOSE INCREASED [None]
  - HYPOTENSION [None]
  - CARDIAC ARREST [None]
  - OVERDOSE [None]
  - SOMNOLENCE [None]
  - HEART RATE INCREASED [None]
  - LACTIC ACIDOSIS [None]
  - RESPIRATORY ARREST [None]
